FAERS Safety Report 10145967 (Version 1)
Quarter: 2014Q2

REPORT INFORMATION
  Report Type: Report from Study
  Country: US (occurrence: US)
  Receive Date: 20140501
  Receipt Date: 20140501
  Transmission Date: 20141212
  Serious: Yes (Hospitalization, Other)
  Sender: FDA-Public Use
  Company Number: PHEH2014US008572

PATIENT
  Sex: Female
  Weight: 72.56 kg

DRUGS (7)
  1. TOBI PODHALER [Suspect]
     Indication: INFECTIVE PULMONARY EXACERBATION OF CYSTIC FIBROSIS
     Dosage: 300 MG/5 ML BID
     Dates: start: 201307
  2. TOBI [Suspect]
     Indication: INFECTIVE PULMONARY EXACERBATION OF CYSTIC FIBROSIS
     Dosage: 112 MG, BID
     Route: 055
     Dates: start: 201307, end: 201401
  3. LEXAPRO [Concomitant]
     Dosage: UNK UKN, UNK
  4. PULMOZYME [Concomitant]
     Dosage: UNK UKN, UNK
  5. NASONEX [Concomitant]
     Dosage: UNK UKN, UNK
  6. SYMBICORT [Concomitant]
     Dosage: UNK UKN, UNK
  7. ALLEGRO (FROVATRIPTAN SUCCINATE) [Concomitant]
     Dosage: UNK UKN, UNK

REACTIONS (7)
  - Infective pulmonary exacerbation of cystic fibrosis [Recovered/Resolved]
  - Cough [Recovered/Resolved]
  - Chest discomfort [Recovered/Resolved]
  - Pulmonary function test decreased [Recovered/Resolved]
  - Drug intolerance [Recovered/Resolved]
  - Haemoptysis [Recovered/Resolved]
  - Dysphonia [Recovered/Resolved]
